FAERS Safety Report 24939801 (Version 1)
Quarter: 2025Q1

REPORT INFORMATION
  Report Type: Spontaneous
  Country: US (occurrence: US)
  Receive Date: 20250207
  Receipt Date: 20250207
  Transmission Date: 20250409
  Serious: Yes (Hospitalization)
  Sender: UROGEN PHARMA
  Company Number: US-UROGEN PHARMA LTD.-2024-UGN-000190

PATIENT

DRUGS (6)
  1. JELMYTO [Suspect]
     Active Substance: MITOMYCIN
     Indication: Transitional cell cancer of the renal pelvis and ureter
     Dates: start: 20241114, end: 20241114
  2. JELMYTO [Suspect]
     Active Substance: MITOMYCIN
     Dates: start: 20241121, end: 20241121
  3. JELMYTO [Suspect]
     Active Substance: MITOMYCIN
     Dates: start: 20241203, end: 20241203
  4. JELMYTO [Suspect]
     Active Substance: MITOMYCIN
     Dates: start: 20241212, end: 20241212
  5. JELMYTO [Suspect]
     Active Substance: MITOMYCIN
     Dates: start: 20241219, end: 20241219
  6. JELMYTO [Suspect]
     Active Substance: MITOMYCIN
     Dates: start: 20241226, end: 20241226

REACTIONS (7)
  - Pancytopenia [Not Recovered/Not Resolved]
  - Malaise [Not Recovered/Not Resolved]
  - Overdose [Unknown]
  - Overdose [Unknown]
  - Overdose [Unknown]
  - Rash [Recovered/Resolved]
  - Flank pain [Not Recovered/Not Resolved]

NARRATIVE: CASE EVENT DATE: 20240101
